FAERS Safety Report 4510748-6 (Version None)
Quarter: 2004Q4

REPORT INFORMATION
  Report Type: 
  Country: None (occurrence: None)
  Receive Date: 20041025
  Receipt Date: 20040205
  Transmission Date: 20050328
  Serious: Yes (Other)
  Sender: FDA-Public Use
  Company Number: NSADSS2002030464

PATIENT
  Age: 48 Year
  Sex: Female
  Weight: 69.8539 kg

DRUGS (7)
  1. REMICADE [Suspect]
     Indication: RHEUMATOID ARTHRITIS
     Dosage: 400 MG, 1 IN 1 AS NECESSARY, INTRAVENOUS DRIP
     Route: 041
     Dates: start: 20020828, end: 20020828
  2. METHOTREXATE [Concomitant]
  3. PEPCID [Concomitant]
  4. ESTRATEST [Concomitant]
  5. VICODIN [Concomitant]
  6. KLONOPIN [Concomitant]
  7. CELEXA [Concomitant]

REACTIONS (1)
  - TACHYCARDIA [None]
